FAERS Safety Report 4569308-3 (Version None)
Quarter: 2005Q1

REPORT INFORMATION
  Report Type: 
  Country: None (occurrence: None)
  Receive Date: 20050118
  Receipt Date: 20040910
  Transmission Date: 20050727
  Serious: Yes (Other)
  Sender: FDA-Public Use
  Company Number: HQWYE038615SEP04

PATIENT
  Age: 50 Year
  Sex: Female
  Weight: 68.1 kg

DRUGS (3)
  1. PREMPRO [Suspect]
     Indication: HORMONE REPLACEMENT THERAPY
     Dosage: 0.625 MG/5MG TABLET DAILY, ORAL
     Route: 048
     Dates: start: 19940101, end: 20040501
  2. CHOLESTYRAMINE [Suspect]
  3. PEPCID [Concomitant]

REACTIONS (3)
  - FLUID RETENTION [None]
  - MOOD SWINGS [None]
  - VAGINAL MYCOSIS [None]
